FAERS Safety Report 14685766 (Version 1)
Quarter: 2018Q1

REPORT INFORMATION
  Report Type: Spontaneous
  Country: US (occurrence: US)
  Receive Date: 20180326
  Receipt Date: 20180326
  Transmission Date: 20180509
  Serious: Yes (Disabling)
  Sender: FDA-Public Use
  Company Number: None

PATIENT
  Age: 33 Year
  Sex: Female
  Weight: 63 kg

DRUGS (1)
  1. BOTOX [Suspect]
     Active Substance: ONABOTULINUMTOXINA
     Route: 030

REACTIONS (6)
  - Cognitive disorder [None]
  - Injection site scar [None]
  - Acne cystic [None]
  - Anxiety [None]
  - Panic attack [None]
  - Injection site indentation [None]

NARRATIVE: CASE EVENT DATE: 20171215
